FAERS Safety Report 9920916 (Version 4)
Quarter: 2014Q2

REPORT INFORMATION
  Report Type: Spontaneous
  Country: US (occurrence: US)
  Receive Date: 20140225
  Receipt Date: 20140416
  Transmission Date: 20141212
  Serious: Yes (Hospitalization)
  Sender: FDA-Public Use
  Company Number: US-BIOGENIDEC-2014BI017053

PATIENT
  Age: 58 Year
  Sex: Female

DRUGS (1)
  1. TYSABRI [Suspect]
     Indication: MULTIPLE SCLEROSIS
     Route: 042
     Dates: start: 20090909

REACTIONS (6)
  - Fall [Recovered/Resolved]
  - Injury [Unknown]
  - Joint injury [Unknown]
  - General symptom [Unknown]
  - Fatigue [Unknown]
  - Arthralgia [Recovered/Resolved]
